FAERS Safety Report 24161598 (Version 1)
Quarter: 2024Q3

REPORT INFORMATION
  Report Type: Report from Study
  Country: US (occurrence: US)
  Receive Date: 20240801
  Receipt Date: 20240801
  Transmission Date: 20241017
  Serious: Yes (Other)
  Sender: GILEAD
  Company Number: US-GILEAD-2024-0682541

PATIENT
  Age: 55 Year
  Sex: Female

DRUGS (1)
  1. AZTREONAM LYSINE [Suspect]
     Active Substance: AZTREONAM LYSINE
     Indication: Bronchiectasis
     Dosage: 1 DOSAGE FORM, 1 VIAL (1 ML) VIA ALTERA NEBULIZER, FOR 28 DAYS FOLLOWED BY 28 DAYS OFF DRU
     Route: 055

REACTIONS (3)
  - Spinal fracture [Unknown]
  - Fall [Recovered/Resolved]
  - Off label use [Not Recovered/Not Resolved]
